FAERS Safety Report 8335642-4 (Version None)
Quarter: 2012Q2

REPORT INFORMATION
  Report Type: 
  Country: None (occurrence: None)
  Receive Date: 20120504
  Receipt Date: 20120426
  Transmission Date: 20120825
  Serious: Yes (Death, Hospitalization)
  Sender: FDA-Public Use
  Company Number: AR-BIOGENIDEC-2012BI012588

PATIENT
  Age: 52 Year
  Sex: Female

DRUGS (3)
  1. AVONEX [Suspect]
     Indication: MULTIPLE SCLEROSIS
     Route: 030
     Dates: start: 20090101
  2. LEVOTHYROXINE SODIUM [Concomitant]
  3. AVONEX [Suspect]
     Route: 030
     Dates: start: 20120401

REACTIONS (4)
  - DEHYDRATION [None]
  - DIARRHOEA [None]
  - DEATH [None]
  - RESPIRATORY DISORDER [None]
